FAERS Safety Report 6160901-3 (Version None)
Quarter: 2009Q2

REPORT INFORMATION
  Report Type: 
  Country: None (occurrence: None)
  Receive Date: 20090417
  Receipt Date: 20090417
  Transmission Date: 20091009
  Serious: Yes (Hospitalization)
  Sender: FDA-Public Use
  Company Number: None

PATIENT
  Age: 52 Year
  Sex: Male
  Weight: 66.6788 kg

DRUGS (5)
  1. INFLIXIMAB 100MG CENTOCOR [Suspect]
     Indication: RHEUMATOID ARTHRITIS
     Dosage: 400MG EVERY 8 WEEKS IV DRIP
     Route: 041
     Dates: start: 20080521, end: 20090211
  2. PEPCID [Concomitant]
  3. BENADRYL [Concomitant]
  4. NS [Concomitant]
  5. SOLU-MEDROL [Concomitant]

REACTIONS (3)
  - CHILLS [None]
  - MUSCLE SPASMS [None]
  - TREMOR [None]
